FAERS Safety Report 23172347 (Version 2)
Quarter: 2024Q1

REPORT INFORMATION
  Report Type: Spontaneous
  Country: GB (occurrence: GB)
  Receive Date: 20231110
  Receipt Date: 20240313
  Transmission Date: 20240409
  Serious: Yes (Hospitalization, Other)
  Sender: FDA-Public Use
  Company Number: GB-MYLANLABS-2023M1111327

PATIENT
  Age: 65 Year
  Sex: Female

DRUGS (8)
  1. LANSOPRAZOLE [Suspect]
     Active Substance: LANSOPRAZOLE
     Indication: Product used for unknown indication
     Dosage: UNK
     Route: 065
  2. CLOZARIL [Suspect]
     Active Substance: CLOZAPINE
     Indication: Schizophrenia
     Dosage: UNK
     Route: 048
     Dates: start: 20140619
  3. DIAZEPAM [Suspect]
     Active Substance: DIAZEPAM
     Indication: Product used for unknown indication
     Dosage: UNK
     Route: 065
  4. DOMPERIDONE [Suspect]
     Active Substance: DOMPERIDONE
     Indication: Product used for unknown indication
     Dosage: UNK
     Route: 065
  5. FLUOXETINE [Suspect]
     Active Substance: FLUOXETINE HYDROCHLORIDE
     Indication: Product used for unknown indication
     Dosage: UNK
     Route: 065
  6. LORAZEPAM [Suspect]
     Active Substance: LORAZEPAM
     Indication: Product used for unknown indication
     Dosage: 3 MILLIGRAM, QD
     Route: 065
  7. OXYBUTYNIN [Suspect]
     Active Substance: OXYBUTYNIN\OXYBUTYNIN CHLORIDE
     Indication: Product used for unknown indication
     Dosage: UNK
     Route: 065
  8. QUETIAPINE [Suspect]
     Active Substance: QUETIAPINE
     Indication: Product used for unknown indication
     Dosage: UNK
     Route: 065

REACTIONS (16)
  - Hospitalisation [Unknown]
  - Delirium [Unknown]
  - Respiratory arrest [Unknown]
  - Neutropenia [Recovered/Resolved]
  - Urinary tract infection [Unknown]
  - Off label use [Unknown]
  - Malaise [Unknown]
  - Dizziness [Unknown]
  - Influenza like illness [Unknown]
  - White blood cell count decreased [Recovered/Resolved]
  - Mental disorder [Unknown]
  - Sedation [Unknown]
  - Salivary hypersecretion [Unknown]
  - Hypotension [Unknown]
  - Ataxia [Unknown]
  - Seizure [Unknown]
